FAERS Safety Report 16903349 (Version 2)
Quarter: 2019Q4

REPORT INFORMATION
  Report Type: Report from Study
  Country: ES (occurrence: ES)
  Receive Date: 20191010
  Receipt Date: 20191015
  Transmission Date: 20200122
  Serious: Yes (Hospitalization)
  Sender: FDA-Public Use
  Company Number: ES-ROCHE-2417428

PATIENT
  Age: 58 Year
  Sex: Female

DRUGS (38)
  1. STILNOX [Concomitant]
     Active Substance: ZOLPIDEM TARTRATE
     Indication: PROPHYLAXIS
     Route: 065
     Dates: start: 20190605
  2. ONDANSETRON [Concomitant]
     Active Substance: ONDANSETRON
     Indication: PREMEDICATION
     Route: 065
     Dates: start: 20190821, end: 20190821
  3. ONDANSETRON [Concomitant]
     Active Substance: ONDANSETRON
     Route: 042
     Dates: start: 20190911, end: 20190911
  4. CYCLOPHOSPHAMIDE. [Suspect]
     Active Substance: CYCLOPHOSPHAMIDE
     Indication: HER-2 POSITIVE BREAST CANCER
     Dosage: MOST RECENT DOSE PRIOR TO EVENT ON 19/JUN/2019 (1120 MG)
     Route: 042
     Dates: start: 20190521
  5. OMEPRAZOLE. [Concomitant]
     Active Substance: OMEPRAZOLE
     Indication: GASTROINTESTINAL DISORDER PROPHYLAXIS
  6. ZOMIG [Concomitant]
     Active Substance: ZOLMITRIPTAN
     Indication: MIGRAINE
  7. DEXCHLORPHENIRAMINE [Concomitant]
     Active Substance: DEXCHLORPHENIRAMINE
     Indication: PREMEDICATION
     Route: 065
     Dates: start: 20190821, end: 20190821
  8. DEXCLORFENIRAMINA [Concomitant]
     Active Substance: DEXCHLORPHENIRAMINE
     Indication: PREMEDICATION
     Route: 042
     Dates: start: 20190911, end: 20190911
  9. TRASTUZUMAB. [Suspect]
     Active Substance: TRASTUZUMAB
     Indication: HER-2 POSITIVE BREAST CANCER
     Dosage: LOADING DOSE
     Route: 042
     Dates: start: 20190717
  10. TRASTUZUMAB. [Suspect]
     Active Substance: TRASTUZUMAB
     Dosage: 6 MG/KG MAINTENANCE DOSE ?MOST RECENT DOSE PRIOR TO EVENT ON 29/AUG/2019 (516 MG)
     Route: 042
  11. PACLITAXEL. [Suspect]
     Active Substance: PACLITAXEL
     Indication: HER-2 POSITIVE BREAST CANCER
     Dosage: MOST RECENT DOSE PRIOR TO EVENT ON 11/SEP/2019 (145 MG)
     Route: 042
     Dates: start: 20190717
  12. PRAVAFENIX [Concomitant]
     Active Substance: FENOFIBRATE\PRAVASTATIN
     Indication: HYPERCHOLESTEROLAEMIA
  13. RANITIDINA [RANITIDINE] [Concomitant]
     Active Substance: RANITIDINE
     Route: 048
     Dates: start: 20190911, end: 20190911
  14. VENOFER [Concomitant]
     Active Substance: IRON SUCROSE
     Indication: PROPHYLAXIS
     Route: 042
     Dates: start: 20190911, end: 20190911
  15. PERTUZUMAB. [Suspect]
     Active Substance: PERTUZUMAB
     Dosage: MAINTENANCE DOSE ?MOST RECENT DOSE PRIOR TO EVENT ON 29/AUG/2019 (420 MG)
     Route: 042
  16. IDAPTAN [Concomitant]
     Active Substance: TRIMETAZIDINE DIHYDROCHLORIDE
  17. LEXATIN (BROMAZEPAM) [Concomitant]
     Active Substance: BROMAZEPAM
     Indication: PROPHYLAXIS
  18. RANITIDINA [RANITIDINE] [Concomitant]
     Active Substance: RANITIDINE
     Indication: PREMEDICATION
     Route: 065
     Dates: start: 20190821, end: 20190821
  19. DEXAMETHASONE. [Concomitant]
     Active Substance: DEXAMETHASONE
     Indication: PREMEDICATION
     Route: 065
     Dates: start: 20190821, end: 20190821
  20. BLINDED ATEZOLIZUMAB [Suspect]
     Active Substance: ATEZOLIZUMAB
     Indication: HER-2 POSITIVE BREAST CANCER
     Dosage: MOST RECENT DOSE PRIOR TO EVENT ON 29/AUG/2019
     Route: 042
     Dates: start: 20190521
  21. PERTUZUMAB. [Suspect]
     Active Substance: PERTUZUMAB
     Indication: HER-2 POSITIVE BREAST CANCER
     Dosage: LOADING DOSE
     Route: 042
     Dates: start: 20190717
  22. DOXORUBICIN [Suspect]
     Active Substance: DOXORUBICIN
     Indication: HER-2 POSITIVE BREAST CANCER
     Dosage: MOST RECENT DOSE PRIOR TO EVENT ON 12/JUN/2019 (110 MG)
     Route: 042
     Dates: start: 20190521
  23. XERACALM A.D [Concomitant]
     Indication: DRY SKIN
     Route: 065
     Dates: start: 20190814
  24. VISCOFRESH [Concomitant]
     Indication: LACRIMATION INCREASED
     Route: 065
     Dates: start: 20190814
  25. DEXAMETHASONE. [Concomitant]
     Active Substance: DEXAMETHASONE
     Route: 042
     Dates: start: 20190829, end: 20190829
  26. ENALAPRIL;HYDROCHLOROTHIAZIDE [Concomitant]
     Active Substance: ENALAPRIL\HYDROCHLOROTHIAZIDE
     Indication: HYPERTENSION
  27. ACOXXEL [Concomitant]
     Active Substance: ETORICOXIB
  28. FORTASEC [LOPERAMIDE HYDROCHLORIDE] [Concomitant]
     Indication: DIARRHOEA
     Route: 065
     Dates: start: 20190818, end: 20190821
  29. RANITIDINA [RANITIDINE] [Concomitant]
     Active Substance: RANITIDINE
     Route: 065
     Dates: start: 20190829, end: 20190829
  30. ZALDIAR [Concomitant]
     Active Substance: ACETAMINOPHEN\TRAMADOL HYDROCHLORIDE
     Indication: PAIN PROPHYLAXIS
  31. ZIVEREL [Concomitant]
     Indication: GASTROOESOPHAGEAL REFLUX DISEASE
     Route: 065
     Dates: start: 20190619
  32. OFTALMOWELL [Concomitant]
     Route: 065
     Dates: start: 20190821
  33. ONDANSETRON [Concomitant]
     Active Substance: ONDANSETRON
     Route: 065
     Dates: start: 20190829, end: 20190829
  34. ONDANSETRON [Concomitant]
     Active Substance: ONDANSETRON
     Route: 048
     Dates: start: 20190904, end: 20190904
  35. DEXAMETHASONE. [Concomitant]
     Active Substance: DEXAMETHASONE
     Route: 048
     Dates: start: 20190829, end: 20190829
  36. DEXAMETHASONE. [Concomitant]
     Active Substance: DEXAMETHASONE
     Route: 048
     Dates: start: 20190904, end: 20190904
  37. DEXAMETASONA [DEXAMETHASONE] [Concomitant]
     Indication: PREMEDICATION
     Route: 042
     Dates: start: 20190911, end: 20190911
  38. DEXAMETASONA [DEXAMETHASONE] [Concomitant]
     Route: 048
     Dates: start: 20190912, end: 20190914

REACTIONS (2)
  - Pulmonary embolism [Recovering/Resolving]
  - Fatigue [Recovering/Resolving]

NARRATIVE: CASE EVENT DATE: 20190918
